FAERS Safety Report 5495057-3 (Version None)
Quarter: 2007Q4

REPORT INFORMATION
  Report Type: 
  Country: None (occurrence: None)
  Receive Date: 20071024
  Receipt Date: 20071010
  Transmission Date: 20080405
  Serious: Yes (Hospitalization)
  Sender: FDA-Public Use
  Company Number: HR-RANBAXY-2007RR-10517

PATIENT

DRUGS (3)
  1. FUROSEMIDE TABLETS BP 40MG [Suspect]
  2. ALLOPURINOL RPG 200MG COMPRIME [Suspect]
     Indication: HYPERURICAEMIA
     Dosage: 200 MG, QD
  3. ESOMEPRAZOLE [Concomitant]

REACTIONS (1)
  - DRUG RASH WITH EOSINOPHILIA AND SYSTEMIC SYMPTOMS [None]
